FAERS Safety Report 5410196-0 (Version None)
Quarter: 2007Q3

REPORT INFORMATION
  Report Type: 
  Country: None (occurrence: None)
  Receive Date: 20070713
  Receipt Date: 20070417
  Transmission Date: 20080115
  Serious: No
  Sender: FDA-Public Use
  Company Number: 2007SP001381

PATIENT
  Age: 67 Year
  Sex: Male
  Weight: 74.8435 kg

DRUGS (6)
  1. LUNESTA [Suspect]
     Dosage: 3 MG;HS;ORAL; 6 MG;HS;ORAL; 9 MG;HS;ORAL 12 MG;PRN;ORAL; 15 MG;PRN;ORAL
     Route: 048
     Dates: start: 20050101
  2. KLONOPIN [Concomitant]
  3. SEROQUEL [Concomitant]
  4. CRESTOR [Concomitant]
  5. WELCHOL [Concomitant]
  6. GLUCOPHAGE [Concomitant]

REACTIONS (3)
  - DRUG INEFFECTIVE [None]
  - DRUG TOLERANCE [None]
  - INITIAL INSOMNIA [None]
